FAERS Safety Report 21927837 (Version 1)
Quarter: 2023Q1

REPORT INFORMATION
  Report Type: Spontaneous
  Country: US (occurrence: None)
  Receive Date: 20230130
  Receipt Date: 20230130
  Transmission Date: 20230418
  Serious: No
  Sender: FDA-Public Use
  Company Number: None

PATIENT
  Age: 57 Year
  Sex: Female
  Weight: 67.5 kg

DRUGS (2)
  1. MIRALAX [Suspect]
     Active Substance: POLYETHYLENE GLYCOL 3350
  2. BC POWDER DAILY [Concomitant]

REACTIONS (4)
  - Pollakiuria [None]
  - Vulvovaginal pruritus [None]
  - Urinary tract infection fungal [None]
  - Drug effect less than expected [None]

NARRATIVE: CASE EVENT DATE: 20230130
